FAERS Safety Report 13720937 (Version 1)
Quarter: 2017Q3

REPORT INFORMATION
  Report Type: Spontaneous
  Country: US (occurrence: US)
  Receive Date: 20170705
  Receipt Date: 20170705
  Transmission Date: 20171127
  Serious: Yes (Other)
  Sender: FDA-Public Use
  Company Number: None

PATIENT
  Age: 51 Year
  Sex: Male
  Weight: 97.65 kg

DRUGS (13)
  1. DIANEAL LOW CALCIUM WITH DEXTROSE [Suspect]
     Active Substance: CALCIUM CHLORIDE\DEXTROSE\MAGNESIUM CHLORIDE\SODIUM CHLORIDE\SODIUM LACTATE
     Indication: END STAGE RENAL DISEASE
     Dosage: OTHER STRENGTH:ML;QUANTITY:6000 ML;OTHER ROUTE:PERITONEAL DIALYSIS?
     Dates: start: 20170630, end: 20170703
  2. GLIPIZIDE. [Concomitant]
     Active Substance: GLIPIZIDE
  3. RENVELA [Concomitant]
     Active Substance: SEVELAMER CARBONATE
  4. CALCIFEROL [Concomitant]
     Active Substance: ERGOCALCIFEROL
  5. RENAL VITAMIN [Concomitant]
  6. HYDRALAZINE [Concomitant]
     Active Substance: HYDRALAZINE HYDROCHLORIDE
  7. AMIODORONE [Concomitant]
     Active Substance: AMIODARONE
  8. TELMASARTIN [Concomitant]
  9. BYSTOLIC [Concomitant]
     Active Substance: NEBIVOLOL HYDROCHLORIDE
  10. LANTUS [Concomitant]
     Active Substance: INSULIN GLARGINE
  11. CITALOPRAM [Concomitant]
     Active Substance: CITALOPRAM HYDROBROMIDE
  12. ATORVASTATIN [Concomitant]
     Active Substance: ATORVASTATIN
  13. HCTZ [Concomitant]
     Active Substance: HYDROCHLOROTHIAZIDE

REACTIONS (6)
  - Musculoskeletal pain [None]
  - Neck pain [None]
  - Product formulation issue [None]
  - Pain [None]
  - Back pain [None]
  - Product contamination [None]

NARRATIVE: CASE EVENT DATE: 20170702
